FAERS Safety Report 6617145-8 (Version None)
Quarter: 2010Q1

REPORT INFORMATION
  Report Type: 
  Country: None (occurrence: None)
  Receive Date: 20100307
  Receipt Date: 20080916
  Transmission Date: 20100710
  Serious: No
  Sender: FDA-Public Use
  Company Number: IT-BAYER-200824976GPV

PATIENT
  Age: 30 Year
  Sex: Female

DRUGS (4)
  1. YASMIN [Suspect]
     Indication: CONTRACEPTION
     Route: 048
  2. YASMIN [Suspect]
     Route: 048
  3. UNFRACTIONATED SODIUM HEPARIN [Concomitant]
     Indication: THROMBOSIS
     Route: 065
  4. WARFARIN SODIUM [Concomitant]
     Indication: THROMBOSIS
     Route: 048

REACTIONS (5)
  - ABDOMINAL PAIN [None]
  - ESSENTIAL THROMBOCYTHAEMIA [None]
  - MESENTERIC VEIN THROMBOSIS [None]
  - PLATELET COUNT INCREASED [None]
  - PORTAL VEIN THROMBOSIS [None]
